FAERS Safety Report 18985674 (Version 1)
Quarter: 2021Q1

REPORT INFORMATION
  Report Type: Report from Study
  Country: HU (occurrence: HU)
  Receive Date: 20210309
  Receipt Date: 20210309
  Transmission Date: 20210420
  Serious: Yes (Other)
  Sender: FDA-Public Use
  Company Number: NVSC2021HU037000

PATIENT
  Age: 73 Year
  Sex: Female

DRUGS (1)
  1. KISQALI [Suspect]
     Active Substance: RIBOCICLIB
     Indication: PRODUCT USED FOR UNKNOWN INDICATION
     Dosage: UNK
     Route: 065

REACTIONS (5)
  - Electrocardiogram QT prolonged [Unknown]
  - Back pain [Unknown]
  - Nausea [Recovered/Resolved]
  - Metastases to spine [Unknown]
  - Alopecia [Unknown]

NARRATIVE: CASE EVENT DATE: 20210224
